FAERS Safety Report 7204545-0 (Version None)
Quarter: 2010Q4

REPORT INFORMATION
  Report Type: 
  Country: None (occurrence: None)
  Receive Date: 20101230
  Receipt Date: 20101217
  Transmission Date: 20110411
  Serious: Yes (Other)
  Sender: FDA-Public Use
  Company Number: PHHY2010DE74099

PATIENT
  Age: 50 Year
  Sex: Male
  Weight: 100 kg

DRUGS (6)
  1. RASILEZ [Suspect]
     Dosage: 300 MG
     Dates: start: 20101001, end: 20101029
  2. HUMINSULIN BASAL [Concomitant]
     Indication: TYPE 1 DIABETES MELLITUS
     Dosage: 46 IU, UNK
     Route: 051
  3. BISOPROLOL [Concomitant]
     Dosage: 5 MG, UNK
     Route: 048
  4. CLOPIDOGREL [Concomitant]
     Dosage: 75 MG, UNK
     Route: 048
  5. SIMVASTATIN [Concomitant]
     Dosage: 20 MG, UNK
     Route: 048
  6. HUMINSULIN NORMAL [Concomitant]
     Dosage: 26 IU, UNK
     Route: 051

REACTIONS (3)
  - BLOOD GLUCOSE DECREASED [None]
  - BLOOD GLUCOSE FLUCTUATION [None]
  - DRUG INEFFECTIVE [None]
